FAERS Safety Report 20351411 (Version 13)
Quarter: 2023Q1

REPORT INFORMATION
  Report Type: Report from Study
  Country: CN (occurrence: None)
  Receive Date: 20220119
  Receipt Date: 20230206
  Transmission Date: 20230418
  Serious: Yes (Hospitalization)
  Sender: FDA-Public Use
  Company Number: CN-ROCHE-2999555

PATIENT
  Age: 60 Year
  Sex: Male
  Weight: 60.5 kg

DRUGS (16)
  1. ATEZOLIZUMAB [Suspect]
     Active Substance: ATEZOLIZUMAB
     Indication: Non-small cell lung cancer stage IV
     Dosage: START DATE OF MOST RECENT DOSE OF STUDY DRUG PRIOR TO AE 16/DEC/2021
     Route: 041
     Dates: start: 20210429
  2. CARBOPLATIN [Suspect]
     Active Substance: CARBOPLATIN
     Indication: Non-small cell lung cancer stage IV
     Dosage: START DATE OF MOST RECENT DOSE OF STUDY DRUG PRIOR TO AE 23/JUL/2021(600 MG)
     Route: 042
     Dates: start: 20210429
  3. BEVACIZUMAB [Suspect]
     Active Substance: BEVACIZUMAB
     Indication: Non-small cell lung cancer stage IV
     Dosage: START DATE OF MOST RECENT DOSE OF STUDY DRUG PRIOR TO AE AND SAE16/DEC/2021
     Route: 042
     Dates: start: 20210429
  4. PEMETREXED [Suspect]
     Active Substance: PEMETREXED
     Indication: Non-small cell lung cancer stage IV
     Dosage: START DATE OF MOST RECENT DOSE OF STUDY DRUG PRIOR TO AE AND SAE 16/DEC/2021
     Route: 042
     Dates: start: 20210429
  5. AMLODIPINE [Concomitant]
     Active Substance: AMLODIPINE BESYLATE
     Indication: Hypertension
     Dates: start: 20220113, end: 2022
  6. METHYLPREDNISOLONE SODIUM SUCCINATE [Concomitant]
     Active Substance: METHYLPREDNISOLONE SODIUM SUCCINATE
     Route: 042
     Dates: start: 20220114, end: 20220119
  7. DEXAMETHASONE [Concomitant]
     Active Substance: DEXAMETHASONE
     Route: 048
     Dates: start: 20211216, end: 20211217
  8. ADEMETIONINE [Concomitant]
     Active Substance: ADEMETIONINE
     Dates: start: 20211216, end: 20211216
  9. PALONOSETRON HYDROCHLORIDE [Concomitant]
     Active Substance: PALONOSETRON HYDROCHLORIDE
     Dates: start: 20211216, end: 20211216
  10. IPRATROPIUM BROMIDE [Concomitant]
     Active Substance: IPRATROPIUM BROMIDE
     Indication: Chronic obstructive pulmonary disease
     Dates: start: 20220108, end: 20220119
  11. BUDESONIDE [Concomitant]
     Active Substance: BUDESONIDE
     Indication: Chronic obstructive pulmonary disease
     Dates: start: 20220108, end: 20220119
  12. PANTOPRAZOLE SODIUM [Concomitant]
     Active Substance: PANTOPRAZOLE SODIUM
     Dates: start: 20220109, end: 20220119
  13. LIDOCAINE HYDROCHLORIDE [Concomitant]
     Active Substance: LIDOCAINE HYDROCHLORIDE
     Dates: start: 20220110, end: 20220110
  14. ALBUMIN HUMAN [Concomitant]
     Active Substance: ALBUMIN HUMAN
     Indication: Hypoalbuminaemia
     Dates: start: 20220111, end: 20220112
  15. DOXOFYLLINE [Concomitant]
     Active Substance: DOXOFYLLINE
     Indication: Chronic obstructive pulmonary disease
     Dates: start: 20220110, end: 20220119
  16. SPIRONOLACTONE [Concomitant]
     Active Substance: SPIRONOLACTONE
     Indication: Autoimmune myocarditis
     Dates: start: 20220107, end: 20220119

REACTIONS (1)
  - Autoimmune myocarditis [Not Recovered/Not Resolved]

NARRATIVE: CASE EVENT DATE: 20220108
